FAERS Safety Report 8823473 (Version 3)
Quarter: 2012Q4

REPORT INFORMATION
  Report Type: 
  Country: US (occurrence: US)
  Receive Date: 20121003
  Receipt Date: 20121214
  Transmission Date: 20130627
  Serious: No
  Sender: FDA-Public Use
  Company Number: US-009507513-1208USA001153

PATIENT
  Sex: Male

DRUGS (6)
  1. PEG-INTRON [Suspect]
     Indication: HEPATITIS C
     Dosage: REDIPEN
     Route: 058
     Dates: start: 20120625
  2. PEG-INTRON [Suspect]
     Dosage: REDIPEN, 0.3
     Route: 058
  3. VICTRELIS [Suspect]
     Indication: HEPATITIS C
     Dosage: UNK
     Route: 048
     Dates: start: 20120723, end: 20120916
  4. RIBAPAK [Suspect]
     Indication: HEPATITIS C
     Dosage: UNK
     Dates: start: 20120625
  5. RIBAPAK [Suspect]
     Dosage: 400 mg, qd
  6. RIBAPAK [Suspect]
     Dosage: 600 mg, qd

REACTIONS (18)
  - Constipation [Unknown]
  - Dyspepsia [Unknown]
  - Dyspnoea [Unknown]
  - Abdominal pain upper [Unknown]
  - Abdominal pain upper [Unknown]
  - Headache [Unknown]
  - Nausea [Unknown]
  - Haematocrit decreased [Unknown]
  - Platelet count decreased [Unknown]
  - Headache [Unknown]
  - Abdominal discomfort [Unknown]
  - Depression [Unknown]
  - Respiratory tract congestion [Unknown]
  - White blood cell count decreased [Unknown]
  - White blood cell count decreased [Unknown]
  - Fatigue [Unknown]
  - Haemoglobin decreased [Unknown]
  - Thrombocytopenia [Unknown]
